FAERS Safety Report 25533677 (Version 1)
Quarter: 2025Q3

REPORT INFORMATION
  Report Type: Spontaneous
  Country: CN (occurrence: CN)
  Receive Date: 20250709
  Receipt Date: 20250709
  Transmission Date: 20251021
  Serious: Yes (Death, Hospitalization)
  Sender: ROCHE
  Company Number: CN-ROCHE-10000329367

PATIENT
  Age: 50 Year
  Sex: Female

DRUGS (9)
  1. TAMIFLU [Suspect]
     Active Substance: OSELTAMIVIR PHOSPHATE
     Indication: Influenza
     Dosage: ON THE 8TH TO 12TH DAY OF HOSPITALIZATION
     Route: 048
  2. URSODIOL [Concomitant]
     Active Substance: URSODIOL
     Dosage: (1ST TO 13TH DAY OF ADMISSION)
     Route: 048
  3. MONTMORILLONITE [Concomitant]
     Active Substance: MONTMORILLONITE
     Dosage: (1ST TO 8TH DAY OF ADMISSION
     Route: 065
  4. OMEPRAZOLE [Concomitant]
     Active Substance: OMEPRAZOLE
     Dosage: 1ST TO 12TH DAY OF ADMISSION
     Route: 042
  5. CEFOPERAZONE SODIUM\SULBACTAM SODIUM [Concomitant]
     Active Substance: CEFOPERAZONE SODIUM\SULBACTAM SODIUM
     Dosage: 1ST TO 5TH DAY OF ADMISSION
     Route: 042
  6. ORNITHINE ASPARTATE [Concomitant]
     Active Substance: ORNITHINE ASPARTATE
     Dosage: 1ST TO 5TH DAY OF ADMISSION
     Route: 042
  7. NOW BRANCHED CHAIN AMINO ACIDS [Concomitant]
     Dosage: (1ST TO 5TH DAY OF ADMISSION)
     Route: 042
  8. ALBUMIN HUMAN [Concomitant]
     Active Substance: ALBUMIN HUMAN
     Dosage: (THE THIRD TO THIRTEENTH DAY OF HOSPITALIZATION)
     Route: 042
  9. COMPOUND EOSINOPHIL LACTOBACILLUS [Concomitant]
     Route: 048

REACTIONS (2)
  - Toxic epidermal necrolysis [Fatal]
  - Multiple organ dysfunction syndrome [Fatal]
